FAERS Safety Report 5160519-5 (Version None)
Quarter: 2006Q4

REPORT INFORMATION
  Report Type: 
  Country: None (occurrence: None)
  Receive Date: 20061129
  Receipt Date: 20061121
  Transmission Date: 20070319
  Serious: Yes (Hospitalization)
  Sender: FDA-Public Use
  Company Number: US-ROXANE LABORATORIES, INC-2006-DE-06194GD

PATIENT
  Age: 43 Year
  Sex: Male

DRUGS (5)
  1. CALCIUM CARBONATE [Suspect]
     Route: 048
  2. ERGOCALCIFEROL [Suspect]
  3. MULTI-VITAMIN [Concomitant]
  4. ASCORBIC ACID [Concomitant]
  5. SIMVASTATIN [Concomitant]

REACTIONS (1)
  - MILK-ALKALI SYNDROME [None]
